FAERS Safety Report 8415672-4 (Version None)
Quarter: 2012Q2

REPORT INFORMATION
  Report Type: 
  Country: None (occurrence: None)
  Receive Date: 20120606
  Receipt Date: 20120529
  Transmission Date: 20120825
  Serious: Yes (Other)
  Sender: FDA-Public Use
  Company Number: US-ASTRAZENECA-2012SE35212

PATIENT
  Age: 56 Year
  Sex: Female

DRUGS (2)
  1. NEXIUM [Suspect]
     Route: 048
  2. PEPCID [Concomitant]

REACTIONS (7)
  - DRUG DOSE OMISSION [None]
  - NEOPLASM MALIGNANT [None]
  - DYSPEPSIA [None]
  - HYPERTENSION [None]
  - DIABETES MELLITUS [None]
  - VOMITING [None]
  - THROAT IRRITATION [None]
